FAERS Safety Report 9359747 (Version 1)
Quarter: 2013Q2

REPORT INFORMATION
  Report Type: Spontaneous
  Country: US (occurrence: US)
  Receive Date: 20130621
  Receipt Date: 20130621
  Transmission Date: 20140414
  Serious: Yes (Disabling)
  Sender: FDA-Public Use
  Company Number: US-ROCHE-1236321

PATIENT
  Sex: Female

DRUGS (5)
  1. INTERFERON ALFA-2A [Suspect]
     Indication: HEPATITIS C
     Dosage: TOTAL FOUR SERIES
     Route: 065
  2. INTERFERON ALFA-2A [Suspect]
     Dosage: FIFTH SERIES
     Route: 065
     Dates: start: 2012, end: 201301
  3. RIBAVIRIN [Suspect]
     Indication: HEPATITIS C
     Dosage: TOTAL FOUR SERIES
     Route: 065
  4. RIBAVIRIN [Suspect]
     Dosage: FIFTH SERIES
     Route: 065
     Dates: start: 2012, end: 201301
  5. INCIVEK [Suspect]
     Indication: HEPATITIS C
     Route: 065
     Dates: start: 201301

REACTIONS (16)
  - Bladder pain [Not Recovered/Not Resolved]
  - Urinary incontinence [Not Recovered/Not Resolved]
  - Anorectal discomfort [Not Recovered/Not Resolved]
  - Blood urine present [Not Recovered/Not Resolved]
  - Cystitis [Recovered/Resolved]
  - Bladder pain [Unknown]
  - Pain [Not Recovered/Not Resolved]
  - Vaginal inflammation [Not Recovered/Not Resolved]
  - Vulvovaginal erythema [Not Recovered/Not Resolved]
  - Dyspareunia [Not Recovered/Not Resolved]
  - Rash erythematous [Unknown]
  - Fatigue [Not Recovered/Not Resolved]
  - Depression [Not Recovered/Not Resolved]
  - Pyrexia [Unknown]
  - Immune system disorder [Unknown]
  - Cystitis interstitial [Unknown]
